FAERS Safety Report 16987657 (Version 3)
Quarter: 2024Q4

REPORT INFORMATION
  Report Type: Spontaneous
  Country: BR (occurrence: BR)
  Receive Date: 20191103
  Receipt Date: 20241212
  Transmission Date: 20250115
  Serious: Yes (Other)
  Sender: BIOMARIN
  Company Number: BR-BIOMARINAP-BR-2019-126649

PATIENT

DRUGS (1)
  1. KUVAN [Suspect]
     Active Substance: SAPROPTERIN DIHYDROCHLORIDE
     Indication: Phenylketonuria
     Dosage: UNK
     Route: 065
     Dates: start: 2020

REACTIONS (1)
  - Drug-induced liver injury [Unknown]
